FAERS Safety Report 9537419 (Version 1)
Quarter: 2013Q3

REPORT INFORMATION
  Report Type: Spontaneous
  Country: US (occurrence: None)
  Receive Date: 20130918
  Receipt Date: 20130918
  Transmission Date: 20140515
  Serious: Yes (Life-Threatening)
  Sender: FDA-Public Use
  Company Number: None

PATIENT
  Age: 52 Year
  Sex: Female
  Weight: 77.11 kg

DRUGS (1)
  1. ARAVA [Suspect]
     Indication: RHEUMATOID ARTHRITIS
     Dosage: 1 ONCE DAILY TAKEN BY MOUTH
     Route: 048
     Dates: start: 20130402, end: 20130406

REACTIONS (8)
  - Pneumonia [None]
  - Hepatic enzyme increased [None]
  - Blood sodium decreased [None]
  - Thermal burn [None]
  - Hallucination [None]
  - Blood urea increased [None]
  - Vomiting [None]
  - Hypophagia [None]
